FAERS Safety Report 9842603 (Version 1)
Quarter: 2014Q1

REPORT INFORMATION
  Report Type: Spontaneous
  Country: US (occurrence: US)
  Receive Date: 20140124
  Receipt Date: 20140124
  Transmission Date: 20141002
  Serious: No
  Sender: FDA-Public Use
  Company Number: US-009507513-1401USA009405

PATIENT
  Age: 28 Year
  Sex: Female

DRUGS (2)
  1. CLARITIN-D-24 [Suspect]
     Indication: NASAL CONGESTION
     Dosage: UNK, UNKNOWN
     Route: 048
  2. CLARITIN-D-24 [Suspect]
     Indication: MALAISE

REACTIONS (3)
  - Panic reaction [Unknown]
  - Palpitations [Unknown]
  - Poor quality sleep [Unknown]
